FAERS Safety Report 9057768 (Version 1)
Quarter: 2013Q1

REPORT INFORMATION
  Report Type: Other
  Country: GB (occurrence: GB)
  Receive Date: 20130204
  Receipt Date: 20130204
  Transmission Date: 20140127
  Serious: Yes (Life-Threatening)
  Sender: FDA-Public Use
  Company Number: GB-PERRIGO-13GB001042

PATIENT
  Age: 20 Year
  Sex: Female

DRUGS (1)
  1. NAPROXEN 250MG 16028/0144 [Suspect]
     Indication: BACK PAIN
     Dosage: 1 DF, TID
     Route: 048
     Dates: start: 20130112, end: 20130118

REACTIONS (3)
  - Haematemesis [Recovering/Resolving]
  - Peptic ulcer haemorrhage [Recovering/Resolving]
  - Syncope [Recovering/Resolving]
